FAERS Safety Report 25941135 (Version 2)
Quarter: 2025Q4

REPORT INFORMATION
  Report Type: Spontaneous
  Country: US (occurrence: US)
  Receive Date: 20251020
  Receipt Date: 20251022
  Transmission Date: 20260117
  Serious: Yes (Hospitalization, Other)
  Sender: PFIZER
  Company Number: US-MLMSERVICE-20251006-PI670034-00101-1

PATIENT
  Age: 44 Year
  Sex: Female

DRUGS (16)
  1. BLEOMYCIN SULFATE [Suspect]
     Active Substance: BLEOMYCIN SULFATE
     Indication: Extragonadal primary germ cell tumour
     Dosage: UNK
  2. BLEOMYCIN SULFATE [Suspect]
     Active Substance: BLEOMYCIN SULFATE
     Indication: Metastases to lymph nodes
  3. BLEOMYCIN SULFATE [Suspect]
     Active Substance: BLEOMYCIN SULFATE
     Indication: Metastases to bone
  4. BLEOMYCIN SULFATE [Suspect]
     Active Substance: BLEOMYCIN SULFATE
     Indication: Metastases to liver
  5. BLEOMYCIN SULFATE [Suspect]
     Active Substance: BLEOMYCIN SULFATE
     Indication: Malignant mediastinal neoplasm
  6. CISPLATIN [Suspect]
     Active Substance: CISPLATIN
     Indication: Extragonadal primary germ cell tumour
     Dosage: UNK
  7. CISPLATIN [Suspect]
     Active Substance: CISPLATIN
     Indication: Metastases to lymph nodes
  8. CISPLATIN [Suspect]
     Active Substance: CISPLATIN
     Indication: Metastases to bone
  9. CISPLATIN [Suspect]
     Active Substance: CISPLATIN
     Indication: Malignant mediastinal neoplasm
  10. CISPLATIN [Suspect]
     Active Substance: CISPLATIN
     Indication: Metastases to liver
  11. ETOPOSIDE [Suspect]
     Active Substance: ETOPOSIDE
     Indication: Extragonadal primary germ cell tumour
     Dosage: UNK
  12. ETOPOSIDE [Suspect]
     Active Substance: ETOPOSIDE
     Indication: Metastases to lymph nodes
  13. ETOPOSIDE [Suspect]
     Active Substance: ETOPOSIDE
     Indication: Metastases to bone
  14. ETOPOSIDE [Suspect]
     Active Substance: ETOPOSIDE
     Indication: Metastases to liver
  15. ETOPOSIDE [Suspect]
     Active Substance: ETOPOSIDE
     Indication: Malignant mediastinal neoplasm
  16. GRANIX [Concomitant]
     Active Substance: TBO-FILGRASTIM
     Indication: Supportive care
     Dosage: UNK

REACTIONS (5)
  - Pneumonia [Unknown]
  - Neutropenia [Unknown]
  - Anaemia [Unknown]
  - Pleural effusion [Unknown]
  - Pneumonia [Unknown]
